FAERS Safety Report 8814864 (Version 2)
Quarter: 2012Q4

REPORT INFORMATION
  Report Type: Report from Study
  Country: US (occurrence: US)
  Receive Date: 20120928
  Receipt Date: 20121026
  Transmission Date: 20130627
  Serious: Yes (Other)
  Sender: FDA-Public Use
  Company Number: US-ABBOTT-12P-163-0986033-00

PATIENT
  Age: 67 None
  Sex: Female
  Weight: 104.42 kg

DRUGS (5)
  1. HUMIRA [Suspect]
     Indication: RHEUMATOID ARTHRITIS
     Route: 058
     Dates: start: 201010, end: 201112
  2. HUMIRA [Suspect]
     Indication: PSORIATIC ARTHROPATHY
     Route: 058
     Dates: start: 201205, end: 201206
  3. HUMIRA [Suspect]
     Route: 058
     Dates: start: 20120917
  4. LIPITOR [Concomitant]
     Indication: BLOOD CHOLESTEROL INCREASED
  5. HYZAAR [Concomitant]
     Indication: HYPERTENSION

REACTIONS (6)
  - Wound dehiscence [Recovered/Resolved]
  - Rheumatoid arthritis [Recovered/Resolved]
  - Impaired healing [Recovered/Resolved]
  - Swelling [Unknown]
  - Arthralgia [Unknown]
  - Gait disturbance [Unknown]
